FAERS Safety Report 13682758 (Version 1)
Quarter: 2017Q2

REPORT INFORMATION
  Report Type: Spontaneous
  Country: US (occurrence: US)
  Receive Date: 20170623
  Receipt Date: 20170623
  Transmission Date: 20170830
  Serious: No
  Sender: FDA-Public Use
  Company Number: US-MALLINCKRODT-T201606431

PATIENT
  Age: 62 Year
  Sex: Male

DRUGS (13)
  1. PREDNISONE. [Concomitant]
     Active Substance: PREDNISONE
  2. H.P. ACTHAR [Suspect]
     Active Substance: CORTICOTROPIN
     Indication: NEPHROTIC SYNDROME
     Dosage: 80U/1ML , TWICE PER WEEK
     Route: 058
     Dates: start: 20160516
  3. ENTECAVIR. [Concomitant]
     Active Substance: ENTECAVIR
  4. NOVOLIN [Concomitant]
     Active Substance: INSULIN HUMAN
  5. DAPSONE. [Concomitant]
     Active Substance: DAPSONE
  6. NORVIR [Concomitant]
     Active Substance: RITONAVIR
  7. CIPROFLOXACIN. [Concomitant]
     Active Substance: CIPROFLOXACIN
  8. DOXYCYCLINE. [Concomitant]
     Active Substance: DOXYCYCLINE
  9. ISENTRESS [Concomitant]
     Active Substance: RALTEGRAVIR POTASSIUM
  10. FUROSEMIDE. [Concomitant]
     Active Substance: FUROSEMIDE
  11. LISINOPRIL. [Concomitant]
     Active Substance: LISINOPRIL
  12. PREZISTA [Concomitant]
     Active Substance: DARUNAVIR ETHANOLATE
  13. LEVOFLOXACIN. [Concomitant]
     Active Substance: LEVOFLOXACIN

REACTIONS (2)
  - Abdominal distension [Unknown]
  - Hiccups [Unknown]

NARRATIVE: CASE EVENT DATE: 20161117
